FAERS Safety Report 5929573-4 (Version None)
Quarter: 2008Q4

REPORT INFORMATION
  Report Type: 
  Country: None (occurrence: None)
  Receive Date: 20081024
  Receipt Date: 20081020
  Transmission Date: 20090506
  Serious: Yes (Disabling)
  Sender: FDA-Public Use
  Company Number: JP-MERCK-0810USA04007

PATIENT
  Age: 83 Year
  Sex: Female

DRUGS (4)
  1. HYZAAR [Suspect]
     Indication: HYPERTENSION
     Route: 048
     Dates: start: 20071117, end: 20071229
  2. CRESTOR [Concomitant]
     Route: 048
     Dates: start: 20071022, end: 20080129
  3. ASPARA K [Concomitant]
     Route: 048
     Dates: start: 20071022, end: 20080129
  4. ASPIRIN [Concomitant]
     Route: 048
     Dates: start: 20071022, end: 20080129

REACTIONS (2)
  - BLOOD CREATININE INCREASED [None]
  - BLOOD URIC ACID INCREASED [None]
